FAERS Safety Report 4433840-3 (Version None)
Quarter: 2004Q3

REPORT INFORMATION
  Report Type: 
  Country: None (occurrence: None)
  Receive Date: 20040825
  Receipt Date: 20040806
  Transmission Date: 20050211
  Serious: Yes (Other)
  Sender: FDA-Public Use
  Company Number: USA040874920

PATIENT
  Age: 56 Year
  Sex: Female
  Weight: 68 kg

DRUGS (11)
  1. FORTEO [Suspect]
     Indication: OSTEOPOROSIS
     Dates: start: 20030501
  2. SYNTHROID [Concomitant]
  3. ESTROGENS ESTERIFIED W/METHYLTESTOSTERONE [Concomitant]
  4. NORVASC [Concomitant]
  5. TENORMIN (ATENOLOL EG) [Concomitant]
  6. LORAZEPAM [Concomitant]
  7. WELLBUTRIN [Concomitant]
  8. NEURONTIN [Concomitant]
  9. ZOLOFT [Concomitant]
  10. MULTI-VITAMINS [Concomitant]
  11. VITAMIN C [Concomitant]

REACTIONS (5)
  - BONE DISORDER [None]
  - CONDITION AGGRAVATED [None]
  - LUNG NEOPLASM [None]
  - PHARMACEUTICAL PRODUCT COMPLAINT [None]
  - PITUITARY-DEPENDENT CUSHING'S SYNDROME [None]
